FAERS Safety Report 21510396 (Version 1)
Quarter: 2022Q4

REPORT INFORMATION
  Report Type: Report from Study
  Country: CA (occurrence: CA)
  Receive Date: 20221026
  Receipt Date: 20221026
  Transmission Date: 20230113
  Serious: Yes (Other)
  Sender: FDA-Public Use
  Company Number: CA-JAZZ-2022-CA-024521

PATIENT
  Sex: Female

DRUGS (12)
  1. XYREM [Suspect]
     Active Substance: SODIUM OXYBATE
     Indication: Cataplexy
     Dosage: 4.5 GRAM, BID DIVIDED IN TWO EQUAL DOSES (QHS AND 2.5 - 4HRS AFTER 1ST DOSE)
     Route: 048
     Dates: start: 20181214, end: 201901
  2. XYREM [Suspect]
     Active Substance: SODIUM OXYBATE
     Indication: Narcolepsy
     Dosage: 6 GRAM, BID DIVIDED IN TWO EQUAL DOSES
     Route: 048
     Dates: start: 201901, end: 201904
  3. XYREM [Suspect]
     Active Substance: SODIUM OXYBATE
     Dosage: 7.5 GRAM, BID DIVIDED IN TWO EQUAL DOSES
     Route: 048
     Dates: start: 20190429, end: 20200420
  4. XYREM [Suspect]
     Active Substance: SODIUM OXYBATE
     Dosage: 8 GRAM, BID DIVIDED IN TWO EQUAL DOSES
     Route: 048
     Dates: start: 20200421, end: 20200625
  5. XYREM [Suspect]
     Active Substance: SODIUM OXYBATE
     Dosage: 9 GRAM, BID DIVIDED IN TWO EQUAL DOSES
     Route: 048
     Dates: start: 20200731, end: 20201109
  6. XYREM [Suspect]
     Active Substance: SODIUM OXYBATE
     Dosage: 6.5 GRAM, BID DIVIDED IN TWO EQUAL DOSES
     Route: 048
     Dates: start: 20201110, end: 20201110
  7. XYREM [Suspect]
     Active Substance: SODIUM OXYBATE
     Dosage: 6.25 GRAM, BID DIVIDED IN TWO EQUAL DOSES
     Route: 048
     Dates: start: 20201110
  8. XYREM [Suspect]
     Active Substance: SODIUM OXYBATE
     Dosage: 9 GRAM, BID DIVIDED IN TWO EQUAL DOSES
     Route: 048
     Dates: start: 20200626, end: 20211104
  9. XYREM [Suspect]
     Active Substance: SODIUM OXYBATE
     Dosage: 4.5 GRAM, BID DIVIDED IN TWO EQUAL DOSES
     Route: 048
     Dates: start: 20211105, end: 2022
  10. XYREM [Suspect]
     Active Substance: SODIUM OXYBATE
     Dosage: 7.5 GRAM, BID DIVIDED IN TWO EQUAL DOSES
     Route: 048
  11. MODAFINIL [Concomitant]
     Active Substance: MODAFINIL
     Indication: Product used for unknown indication
     Dosage: (2 TABS IN AM AND 2 TABS IN PM PRN)
  12. MIDOL [Concomitant]
     Active Substance: IBUPROFEN
     Indication: Headache
     Dosage: UNK

REACTIONS (1)
  - Drug dependence [Unknown]
